FAERS Safety Report 5033149-3 (Version None)
Quarter: 2006Q2

REPORT INFORMATION
  Report Type: 
  Country: None (occurrence: None)
  Receive Date: 20060505
  Receipt Date: 20060228
  Transmission Date: 20061013
  Serious: Yes (Other)
  Sender: FDA-Public Use
  Company Number: PHEH2006US02724

PATIENT
  Age: 45 Year
  Sex: Female

DRUGS (1)
  1. DIOVAN HCT [Suspect]
     Indication: HYPERTENSION
     Dosage: 160/25 MG
     Dates: start: 20040601, end: 20050917

REACTIONS (2)
  - HYPOACUSIS [None]
  - VIRAL INFECTION [None]
